FAERS Safety Report 17542595 (Version 1)
Quarter: 2020Q1

REPORT INFORMATION
  Report Type: Spontaneous
  Country: US (occurrence: US)
  Receive Date: 20200315
  Receipt Date: 20200315
  Transmission Date: 20200409
  Serious: No
  Sender: FDA-Public Use
  Company Number: US-LEO PHARMA-328731

PATIENT
  Sex: Female

DRUGS (4)
  1. EUCRISA [Concomitant]
     Active Substance: CRISABOROLE
     Indication: SEBORRHOEIC DERMATITIS
  2. PROTOPIC [Suspect]
     Active Substance: TACROLIMUS
     Indication: SEBORRHOEIC DERMATITIS
     Route: 061
  3. DESONIDE. [Concomitant]
     Active Substance: DESONIDE
     Indication: SEBORRHOEIC DERMATITIS
  4. ELIDEL [Concomitant]
     Active Substance: PIMECROLIMUS
     Indication: SEBORRHOEIC DERMATITIS

REACTIONS (3)
  - Dry skin [Unknown]
  - Product use in unapproved indication [Unknown]
  - Pruritus [Not Recovered/Not Resolved]
